FAERS Safety Report 11831157 (Version 1)
Quarter: 2015Q4

REPORT INFORMATION
  Report Type: Other
  Country: GB (occurrence: GB)
  Receive Date: 20151214
  Receipt Date: 20151214
  Transmission Date: 20160305
  Serious: Yes (Other)
  Sender: FDA-Public Use
  Company Number: GB-CIPLA LTD.-2015GB09220

PATIENT

DRUGS (12)
  1. CETIRIZINE [Suspect]
     Active Substance: CETIRIZINE HYDROCHLORIDE
     Dosage: UNK
     Route: 065
     Dates: start: 20151123
  2. ASPIRIN. [Concomitant]
     Active Substance: ASPIRIN
     Dosage: 1 DF, QD AS ADVISED BY RENAL TEAM
     Route: 065
     Dates: start: 20151007
  3. ALFACALCIDOL [Concomitant]
     Active Substance: ALFACALCIDOL
     Dosage: 3 DF, BID GIVEN ON THE RENAL UNIT
     Route: 065
     Dates: start: 20150611
  4. BISOPROLOL [Concomitant]
     Active Substance: BISOPROLOL
     Dosage: 1 DF, QD
     Route: 065
     Dates: start: 20140108
  5. PARACETAMOL [Concomitant]
     Active Substance: ACETAMINOPHEN
     Dosage: TAKE 1 OR 2, 4 TIMES/DAY
     Route: 065
     Dates: start: 20150611
  6. FOLIC ACID. [Concomitant]
     Active Substance: FOLIC ACID
     Dosage: 1 DF, TID ON THE RENAL UNIT
     Route: 065
     Dates: start: 20150611
  7. VITAMIN B SUBSTANCES [Concomitant]
     Dosage: 2 DF, TID ON THE RENAL UNIT
     Route: 065
     Dates: start: 20150611
  8. DARBEPOETIN ALFA [Concomitant]
     Active Substance: DARBEPOETIN ALFA
     Dosage: 1 DF, QD ON THE RENAL UNIT
     Route: 065
     Dates: start: 20150611
  9. ANTIHISTAMINES [Suspect]
     Active Substance: ANTIHISTAMINES NOS
     Route: 065
  10. COLECALCIFEROL [Concomitant]
     Active Substance: CHOLECALCIFEROL
     Dosage: 1 DF, TID GIVEN BY THE RENAL UNIT
     Route: 065
     Dates: start: 20150611
  11. LANSOPRAZOLE. [Concomitant]
     Active Substance: LANSOPRAZOLE
     Dosage: 1 DF, BID AS ADVISED BY RENAL UNIT
     Route: 065
     Dates: start: 20150611
  12. NUTRITIONAL SUPPLEMENT [Concomitant]
     Active Substance: DIETARY SUPPLEMENT
     Dosage: 30 ML, TID
     Route: 065
     Dates: start: 20150611

REACTIONS (1)
  - Electrocardiogram QT prolonged [Recovered/Resolved]

NARRATIVE: CASE EVENT DATE: 20151123
